FAERS Safety Report 6170626-6 (Version None)
Quarter: 2009Q2

REPORT INFORMATION
  Report Type: 
  Country: None (occurrence: None)
  Receive Date: 20090428
  Receipt Date: 20090427
  Transmission Date: 20091009
  Serious: Yes (Other)
  Sender: FDA-Public Use
  Company Number: US-JNJFOC-20081201303

PATIENT
  Sex: Female
  Weight: 88 kg

DRUGS (14)
  1. FENTANYL TRANSDERMAL SYSTEM [Suspect]
     Route: 062
  2. FENTANYL TRANSDERMAL SYSTEM [Suspect]
     Route: 062
  3. FENTANYL TRANSDERMAL SYSTEM [Suspect]
     Route: 062
  4. FENTANYL TRANSDERMAL SYSTEM [Suspect]
     Indication: MIGRAINE
     Route: 062
  5. LORTAB [Concomitant]
     Indication: BREAKTHROUGH PAIN
     Dosage: 5/500 MG EVERY 3 TO 4 DAYS
     Route: 048
  6. LANTUS [Concomitant]
     Indication: DIABETES MELLITUS
     Dosage: AT BEDTIME
     Route: 058
  7. HUMALOG [Concomitant]
     Indication: DIABETES MELLITUS
     Dosage: BEFORE EACH MEAL
     Route: 058
  8. CITALOPRAM [Concomitant]
     Indication: DEPRESSION
     Route: 048
  9. ADVAIR DISKUS 100/50 [Concomitant]
     Indication: ASTHMA
     Dosage: 100/50 BID INHALATION
     Route: 055
  10. ALBUTEROL [Concomitant]
     Indication: ASTHMA
     Dosage: 0.09MG INHALATION
     Route: 055
  11. KLONOPIN [Concomitant]
     Indication: ANXIETY
     Route: 048
  12. RESTORIL [Concomitant]
     Indication: SLEEP DISORDER
     Dosage: BED TIME
     Route: 048
  13. HYDROCODONE BITARTRATE AND ACETAMINOPHEN [Concomitant]
     Indication: MIGRAINE
     Dosage: 7.5/500MG
     Route: 048
  14. HYDROCODONE BITARTRATE [Concomitant]
     Dosage: 10/500 ONE TWICW A DAY, TWO PER DAY
     Route: 065

REACTIONS (13)
  - BLOOD CHOLESTEROL INCREASED [None]
  - BONE PAIN [None]
  - CYSTITIS [None]
  - DIABETIC NEUROPATHY [None]
  - HEADACHE [None]
  - HYPERTENSION [None]
  - MYALGIA [None]
  - OFF LABEL USE [None]
  - PAIN [None]
  - THYROID DISORDER [None]
  - TREATMENT NONCOMPLIANCE [None]
  - WITHDRAWAL SYNDROME [None]
  - WRONG TECHNIQUE IN DRUG USAGE PROCESS [None]
